FAERS Safety Report 15764251 (Version 2)
Quarter: 2019Q1

REPORT INFORMATION
  Report Type: Spontaneous
  Country: US (occurrence: US)
  Receive Date: 20181227
  Receipt Date: 20190102
  Transmission Date: 20190417
  Serious: No
  Sender: FDA-Public Use
  Company Number: US-PCCINC-2017-PEL-003302

PATIENT

DRUGS (1)
  1. GABLOFEN [Suspect]
     Active Substance: BACLOFEN
     Indication: MUSCLE SPASTICITY
     Dosage: 399.75 ?G, QD
     Route: 037

REACTIONS (2)
  - Weight increased [Unknown]
  - Device inversion [Recovered/Resolved]

NARRATIVE: CASE EVENT DATE: 20171005
